FAERS Safety Report 7732333-5 (Version None)
Quarter: 2011Q3

REPORT INFORMATION
  Report Type: 
  Country: None (occurrence: None)
  Receive Date: 20110906
  Receipt Date: 20110826
  Transmission Date: 20111222
  Serious: No
  Sender: FDA-Public Use
  Company Number: US-AMGEN-USASP2011043807

PATIENT
  Age: 72 Year
  Sex: Female

DRUGS (9)
  1. SIMVASTATIN [Concomitant]
     Dosage: 1 MG, QD
  2. NIACIN [Concomitant]
     Dosage: 1 MG, QD
  3. MULTIVITAMIN                       /00097801/ [Concomitant]
  4. PROLIA [Suspect]
     Indication: OSTEOPOROSIS POSTMENOPAUSAL
     Dosage: 60 MG, UNK
     Dates: start: 20110106
  5. CALCIUM WITH VITAMIN D             /00944201/ [Concomitant]
     Dosage: 2 MG, QD
  6. SYNTHROID [Concomitant]
  7. HYDROCHLOROTHIAZIDE [Concomitant]
     Dosage: 1 MG, QD
  8. BENADRYL [Concomitant]
     Indication: HYPERSENSITIVITY
  9. METOPROLOL TARTRATE [Concomitant]
     Dosage: 1 MG, QD

REACTIONS (1)
  - FEELING ABNORMAL [None]
